FAERS Safety Report 23334409 (Version 1)
Quarter: 2023Q4

REPORT INFORMATION
  Report Type: Spontaneous
  Country: US (occurrence: US)
  Receive Date: 20231224
  Receipt Date: 20231224
  Transmission Date: 20240110
  Serious: Yes (Hospitalization, Other)
  Sender: FDA-Public Use
  Company Number: US-MYLANLABS-2014S1017752

PATIENT
  Age: 43 Year
  Sex: Male

DRUGS (5)
  1. CIPROFLOXACIN [Interacting]
     Active Substance: CIPROFLOXACIN
     Indication: Product used for unknown indication
     Dosage: 750 MG, TWO TIMES A DAY
     Route: 065
  2. HYDROXYCHLOROQUINE [Interacting]
     Active Substance: HYDROXYCHLOROQUINE
     Indication: Q fever
     Dosage: 300 MG, DAILY
     Route: 065
  3. HYDROXYCHLOROQUINE [Interacting]
     Active Substance: HYDROXYCHLOROQUINE
     Dosage: 200 MG, TWO TIMES A DAY
     Route: 065
  4. RIFAMPIN [Interacting]
     Active Substance: RIFAMPIN
     Indication: Q fever
     Dosage: 600 MG, DAILY
     Route: 065
  5. DOXYCYCLINE [Concomitant]
     Active Substance: DOXYCYCLINE
     Indication: Q fever
     Dosage: UNK
     Route: 065

REACTIONS (6)
  - Acute psychosis [Recovered/Resolved]
  - Hallucinations, mixed [Recovered/Resolved]
  - Drug interaction [Recovered/Resolved]
  - Nausea [Unknown]
  - Vomiting [Unknown]
  - Hepatic enzyme increased [Unknown]
